FAERS Safety Report 21582599 (Version 2)
Quarter: 2022Q4

REPORT INFORMATION
  Report Type: Spontaneous
  Country: US (occurrence: US)
  Receive Date: 20221111
  Receipt Date: 20221123
  Transmission Date: 20230113
  Serious: No
  Sender: FDA-Public Use
  Company Number: US-SA-SAC20221107001383

PATIENT
  Sex: Female

DRUGS (1)
  1. DUPIXENT [Suspect]
     Active Substance: DUPILUMAB
     Dosage: 300MG, OTHER
     Route: 065

REACTIONS (4)
  - Injection site urticaria [Unknown]
  - Injection site rash [Unknown]
  - Dry eye [Unknown]
  - Maternal exposure during pregnancy [Unknown]
